FAERS Safety Report 7589406-X (Version None)
Quarter: 2011Q3

REPORT INFORMATION
  Report Type: 
  Country: None (occurrence: None)
  Receive Date: 20110705
  Receipt Date: 20110627
  Transmission Date: 20111222
  Serious: Yes (Hospitalization)
  Sender: FDA-Public Use
  Company Number: FR-B.I. PHARMACEUTICALS,INC./RIDGEFIELD-2011-FF-00618FF

PATIENT
  Sex: Male

DRUGS (8)
  1. PRADAXA [Suspect]
     Dosage: 220 MG
     Route: 048
  2. BISOPROLOL FUMARATE [Concomitant]
     Dosage: 5 MG
     Route: 048
  3. TAMSULOSIN HCL [Concomitant]
     Dosage: 0.4 MG
     Route: 048
  4. ATORVASTATIN CALCIUM [Concomitant]
     Dosage: 10 MG
     Route: 048
  5. STALEVO 100 [Concomitant]
     Dosage: 150 MG/37.5 MG/200 MG X 4 DAILY
     Route: 048
  6. TRAMADOL HCL [Concomitant]
     Dosage: 200 MG
     Route: 048
  7. ACETAMINOPHEN [Concomitant]
     Route: 048
  8. FORLAX [Concomitant]
     Route: 048

REACTIONS (4)
  - HAEMOTHORAX [None]
  - MALAISE [None]
  - RIB FRACTURE [None]
  - FALL [None]
